FAERS Safety Report 6404248-6 (Version None)
Quarter: 2009Q4

REPORT INFORMATION
  Report Type: 
  Country: None (occurrence: None)
  Receive Date: 20091016
  Receipt Date: 20091008
  Transmission Date: 20100525
  Serious: Yes (Congenital Anomaly)
  Sender: FDA-Public Use
  Company Number: A0681621A

PATIENT
  Sex: Female

DRUGS (3)
  1. PAXIL CR [Suspect]
     Indication: ANXIETY
     Dosage: 12.5MG PER DAY
     Dates: start: 20050101, end: 20050301
  2. PAROXETINE [Suspect]
     Indication: ANXIETY
     Dates: start: 20050301, end: 20051101
  3. VITAMIN TAB [Concomitant]

REACTIONS (6)
  - ATRIAL SEPTAL DEFECT [None]
  - CARDIOMEGALY [None]
  - COGNITIVE DISORDER [None]
  - CONGENITAL ANOMALY [None]
  - DRUG EXPOSURE DURING PREGNANCY [None]
  - PULMONARY HYPERTENSION [None]
